FAERS Safety Report 7040633-X (Version None)
Quarter: 2010Q4

REPORT INFORMATION
  Report Type: 
  Country: None (occurrence: None)
  Receive Date: 20101012
  Receipt Date: 20101007
  Transmission Date: 20110411
  Serious: Yes (Hospitalization, Other)
  Sender: FDA-Public Use
  Company Number: US-AMGEN-QUU372572

PATIENT
  Sex: Female
  Weight: 84.4 kg

DRUGS (3)
  1. ENBREL [Suspect]
     Indication: PSORIATIC ARTHROPATHY
     Route: 058
     Dates: start: 20080301
  2. ENBREL [Suspect]
     Indication: PSORIASIS
  3. HYDROXYCHLOROQUINE [Concomitant]
     Route: 048

REACTIONS (9)
  - ARTHRALGIA [None]
  - DIARRHOEA [None]
  - KNEE ARTHROPLASTY [None]
  - NAUSEA [None]
  - ONYCHOCLASIS [None]
  - OSTEOARTHRITIS [None]
  - PRECANCEROUS SKIN LESION [None]
  - SKIN CANCER [None]
  - SKIN EXFOLIATION [None]
